FAERS Safety Report 8096576-6 (Version None)
Quarter: 2012Q1

REPORT INFORMATION
  Report Type: 
  Country: None (occurrence: None)
  Receive Date: 20120129
  Receipt Date: 20111109
  Transmission Date: 20120608
  Serious: No
  Sender: FDA-Public Use
  Company Number: US-ABBOTT-11P-163-0872579-00

PATIENT
  Sex: Male
  Weight: 115.77 kg

DRUGS (4)
  1. HUMIRA [Suspect]
     Indication: PSORIATIC ARTHROPATHY
     Dates: start: 20080101, end: 20110201
  2. HUMIRA [Suspect]
     Dates: start: 20111001
  3. PREDNISONE TAB [Concomitant]
     Indication: PRODUCT USED FOR UNKNOWN INDICATION
  4. GABAPENTIN [Concomitant]
     Indication: PAIN

REACTIONS (1)
  - DRUG INEFFECTIVE [None]
